FAERS Safety Report 9796891 (Version 2)
Quarter: 2014Q3

REPORT INFORMATION
  Report Type: Report from Study
  Country: US (occurrence: US)
  Receive Date: 20140104
  Receipt Date: 20140716
  Transmission Date: 20150326
  Serious: No
  Sender: FDA-Public Use
  Company Number: US-SUCAMPO PHARMA AMERICAS, INC-SPI201300895

PATIENT
  Age: 35 Year
  Sex: Female
  Weight: 80 kg

DRUGS (2)
  1. PLACEBO [Suspect]
     Active Substance: UNSPECIFIED INGREDIENT
     Dosage: 2 PUMPS TWICE DAILY
     Dates: start: 20131205, end: 20131211
  2. LUBIPROSTONE [Suspect]
     Active Substance: LUBIPROSTONE
     Dosage: 12 MCG X 2 PUMPS
     Dates: start: 20131213, end: 20131213

REACTIONS (2)
  - No adverse event [Not Recovered/Not Resolved]
  - Pregnancy [Not Recovered/Not Resolved]

NARRATIVE: CASE EVENT DATE: 20131220
